APPROVED DRUG PRODUCT: PROGESTASERT
Active Ingredient: PROGESTERONE
Strength: 38MG
Dosage Form/Route: INSERT, EXTENDED RELEASE;INTRAUTERINE
Application: N017553 | Product #001
Applicant: ALZA CORP
Approved: Approved Prior to Jan 1, 1982 | RLD: No | RS: No | Type: DISCN